FAERS Safety Report 18629557 (Version 2)
Quarter: 2021Q1

REPORT INFORMATION
  Report Type: Report from Study
  Country: FI (occurrence: FI)
  Receive Date: 20201217
  Receipt Date: 20210112
  Transmission Date: 20210419
  Serious: Yes (Hospitalization)
  Sender: FDA-Public Use
  Company Number: FI-ROCHE-2733374

PATIENT
  Age: 69 Year
  Sex: Male
  Weight: 101 kg

DRUGS (12)
  1. COTRIM FORTE [Concomitant]
     Active Substance: SULFAMETHOXAZOLE\TRIMETHOPRIM
     Dosage: DOSE: 160/800 MG
     Route: 048
     Dates: start: 20191217
  2. VALACICLOVIR [Concomitant]
     Active Substance: VALACYCLOVIR HYDROCHLORIDE
     Route: 048
     Dates: start: 20191216
  3. PREDNISOLONE. [Concomitant]
     Active Substance: PREDNISOLONE
     Route: 048
     Dates: start: 20191203
  4. ORLOC [Concomitant]
     Active Substance: BISOPROLOL FUMARATE
     Route: 048
     Dates: start: 20151209
  5. PANADOL [Concomitant]
     Active Substance: ACETAMINOPHEN
     Route: 048
     Dates: start: 20191214
  6. ELIQUIS [Concomitant]
     Active Substance: APIXABAN
     Route: 048
     Dates: start: 20201228
  7. RITUXIMAB. [Suspect]
     Active Substance: RITUXIMAB
     Indication: CHRONIC LYMPHOCYTIC LEUKAEMIA
     Dosage: (BEFORE CHEMOTHERAPY): CYCLE 1: 375 MG/M2, D0; CYCLES 2?6: 500 MG/M2, D1; Q28D
     Route: 042
     Dates: start: 20171101, end: 20180321
  8. FOLVITE [Concomitant]
     Active Substance: FOLIC ACID
     Route: 048
     Dates: start: 20191231
  9. OPAMOX [Concomitant]
     Active Substance: OXAZEPAM
     Dosage: DOSE: 15
     Route: 048
     Dates: start: 20190605
  10. VENETOCLAX. [Concomitant]
     Active Substance: VENETOCLAX
     Route: 048
     Dates: start: 20201228
  11. BENDAMUSTINE [Suspect]
     Active Substance: BENDAMUSTINE
     Indication: CHRONIC LYMPHOCYTIC LEUKAEMIA
     Dosage: CYCLES 1?6: 90 MG/M2, D1?2, Q28D
     Route: 042
     Dates: start: 20170101, end: 20180322
  12. APURIN [Concomitant]
     Active Substance: ALLOPURINOL
     Route: 048
     Dates: start: 20201022, end: 20201214

REACTIONS (1)
  - Infusion related reaction [Recovered/Resolved]

NARRATIVE: CASE EVENT DATE: 20201210
